FAERS Safety Report 21770348 (Version 1)
Quarter: 2022Q4

REPORT INFORMATION
  Report Type: Spontaneous
  Country: JP (occurrence: JP)
  Receive Date: 20221223
  Receipt Date: 20221223
  Transmission Date: 20230113
  Serious: Yes (Other)
  Sender: FDA-Public Use
  Company Number: JP-ADVANZ PHARMA-202212008853

PATIENT

DRUGS (1)
  1. HYDROXYCHLOROQUINE SULFATE [Suspect]
     Active Substance: HYDROXYCHLOROQUINE SULFATE
     Indication: Product used for unknown indication
     Dosage: UNK, QD (FILM-COATED TABLET,)
     Route: 048
     Dates: start: 202210, end: 202211

REACTIONS (1)
  - Oculomucocutaneous syndrome [Recovered/Resolved]

NARRATIVE: CASE EVENT DATE: 20221001
